FAERS Safety Report 19092358 (Version 1)
Quarter: 2021Q2

REPORT INFORMATION
  Report Type: Spontaneous
  Country: US (occurrence: US)
  Receive Date: 20210405
  Receipt Date: 20210405
  Transmission Date: 20210717
  Serious: No
  Sender: FDA-Public Use
  Company Number: US-PFIZER INC-2021335386

PATIENT
  Age: 56 Year
  Sex: Male

DRUGS (2)
  1. TESTOSTERONE CIPIONATE [Suspect]
     Active Substance: TESTOSTERONE
     Dosage: TWO DOSES OF 0.7 FROM EACH VIAL (1.4 EVERY TWO WEEKS)
     Route: 030
  2. TESTOSTERONE CIPIONATE [Suspect]
     Active Substance: TESTOSTERONE
     Dosage: TWO DOSES OF 0.7 FROM EACH VIAL (1.4 EVERY TWO WEEKS)
     Route: 030

REACTIONS (1)
  - Therapeutic product effect incomplete [Unknown]
